FAERS Safety Report 24361703 (Version 2)
Quarter: 2024Q4

REPORT INFORMATION
  Report Type: Spontaneous
  Country: GB (occurrence: GB)
  Receive Date: 20240925
  Receipt Date: 20241223
  Transmission Date: 20250114
  Serious: Yes (Hospitalization)
  Sender: MYLAN
  Company Number: GB-MYLANLABS-2024M1085914

PATIENT
  Sex: Female

DRUGS (2)
  1. CLOZARIL [Suspect]
     Active Substance: CLOZAPINE
     Indication: Schizophrenia
     Dosage: 800 MILLIGRAM
     Route: 048
     Dates: start: 20221118
  2. VALPROATE SODIUM [Concomitant]
     Active Substance: VALPROATE SODIUM
     Dosage: 400 MILLIGRAM
     Route: 065

REACTIONS (3)
  - Schizophrenia [Unknown]
  - Therapy interrupted [Unknown]
  - Treatment noncompliance [Unknown]
